FAERS Safety Report 7043101-4 (Version None)
Quarter: 2010Q4

REPORT INFORMATION
  Report Type: 
  Country: None (occurrence: None)
  Receive Date: 20101013
  Receipt Date: 20101005
  Transmission Date: 20110411
  Serious: Yes (Other)
  Sender: FDA-Public Use
  Company Number: AR-GENZYME-CERZ-1001578

PATIENT

DRUGS (4)
  1. CEREZYME [Suspect]
     Indication: GAUCHER'S DISEASE
     Dosage: 60 U/KG, Q2W
     Route: 042
  2. PAMIDRONATE DISODIUM [Concomitant]
     Indication: OSTEOPOROSIS
     Dosage: 60 MG, UNK
     Route: 042
  3. CALCIUM [Concomitant]
     Indication: OSTEOPOROSIS
     Dosage: 500 MG, QD
  4. VITAMIN D2 [Concomitant]
     Indication: OSTEOPOROSIS
     Dosage: 800 IU, QD

REACTIONS (1)
  - PRE-ECLAMPSIA [None]
